FAERS Safety Report 6667366-3 (Version None)
Quarter: 2010Q2

REPORT INFORMATION
  Report Type: 
  Country: None (occurrence: None)
  Receive Date: 20100405
  Receipt Date: 20100324
  Transmission Date: 20101027
  Serious: Yes (Other)
  Sender: FDA-Public Use
  Company Number: PHHY2010FR19954

PATIENT
  Age: 83 Year
  Sex: Female

DRUGS (1)
  1. RASILEZ [Suspect]
     Indication: HYPERTENSION
     Dosage: 150 MG, UNK
     Dates: start: 20100123, end: 20100209

REACTIONS (3)
  - RASH [None]
  - SKIN DISCOLOURATION [None]
  - TOXIC SKIN ERUPTION [None]
